FAERS Safety Report 8841580 (Version 1)
Quarter: 2012Q4

REPORT INFORMATION
  Report Type: 
  Country: US (occurrence: US)
  Receive Date: 20121016
  Receipt Date: 20121016
  Transmission Date: 20130627
  Serious: No
  Sender: FDA-Public Use
  Company Number: US-BIOGENIDEC-2012BI043867

PATIENT
  Sex: Female

DRUGS (2)
  1. AVONEX [Suspect]
     Indication: MULTIPLE SCLEROSIS
     Route: 030
  2. AVONEX [Suspect]
     Indication: MULTIPLE SCLEROSIS
     Route: 030
     Dates: start: 20031216, end: 20090103

REACTIONS (6)
  - Asthma [Unknown]
  - Visual acuity reduced [Unknown]
  - Cough [Unknown]
  - Depression [Unknown]
  - Anxiety [Unknown]
  - Influenza like illness [Not Recovered/Not Resolved]
